FAERS Safety Report 15689059 (Version 1)
Quarter: 2018Q4

REPORT INFORMATION
  Report Type: Spontaneous
  Country: CA (occurrence: CA)
  Receive Date: 20181121
  Receipt Date: 20181121
  Transmission Date: 20190205
  Serious: Yes (Hospitalization)
  Sender: FDA-Public Use
  Company Number: None

PATIENT
  Age: 56 Year
  Sex: Female
  Weight: 47.63 kg

DRUGS (2)
  1. ELTROXIN (LEVOTHYROXINE SODIUM) [Suspect]
     Active Substance: LEVOTHYROXINE
     Indication: HYPOTHYROIDISM
     Dosage: ?          QUANTITY:1 TABLET;OTHER FREQUENCY:ONCE DAILY;?
     Route: 048
     Dates: start: 20180122, end: 20180327
  2. SYNTHROID [Concomitant]
     Active Substance: LEVOTHYROXINE SODIUM

REACTIONS (3)
  - Myocardial infarction [None]
  - Palpitations [None]
  - Insomnia [None]

NARRATIVE: CASE EVENT DATE: 20180315
